FAERS Safety Report 21240188 (Version 1)
Quarter: 2022Q3

REPORT INFORMATION
  Report Type: Spontaneous
  Country: US (occurrence: None)
  Receive Date: 20220819
  Receipt Date: 20220819
  Transmission Date: 20221026
  Serious: Yes (Hospitalization)
  Sender: FDA-Public Use
  Company Number: None

PATIENT
  Age: 77 Year
  Sex: Male

DRUGS (10)
  1. IMATINIB MESYLATE [Suspect]
     Active Substance: IMATINIB MESYLATE
     Indication: Chronic myeloid leukaemia
     Dosage: FREQUENCY : DAILY;?
     Route: 048
  2. ALLOPURINOL [Concomitant]
  3. ASPIRIN [Concomitant]
  4. ATORVASTATIN [Concomitant]
  5. CALCIUM [Concomitant]
  6. CLOPIDOGREL [Concomitant]
  7. FEMOTIDINE [Concomitant]
  8. INSULIN NOS [Concomitant]
     Active Substance: INSULIN NOS
  9. MULTI VITAMIN [Concomitant]
  10. TAMSULOSIN HCI [Concomitant]

REACTIONS (1)
  - Hospitalisation [None]
